FAERS Safety Report 7742171-5 (Version None)
Quarter: 2011Q3

REPORT INFORMATION
  Report Type: 
  Country: None (occurrence: None)
  Receive Date: 20110912
  Receipt Date: 20110901
  Transmission Date: 20111222
  Serious: Yes (Other)
  Sender: FDA-Public Use
  Company Number: DE-JNJFOC-20110807543

PATIENT
  Sex: Male
  Weight: 69 kg

DRUGS (4)
  1. REMICADE [Suspect]
     Route: 042
  2. REMICADE [Suspect]
     Indication: ANKYLOSING SPONDYLITIS
     Route: 042
     Dates: start: 20110622
  3. REMICADE [Suspect]
     Route: 042
     Dates: start: 20110119, end: 20110119
  4. REMICADE [Suspect]
     Route: 042
     Dates: start: 20110601

REACTIONS (8)
  - CARDIOVASCULAR DISORDER [None]
  - TREMOR [None]
  - INFUSION RELATED REACTION [None]
  - PARAESTHESIA [None]
  - ANAPHYLACTIC REACTION [None]
  - NAUSEA [None]
  - HOT FLUSH [None]
  - HYPOTENSION [None]
